FAERS Safety Report 15542950 (Version 3)
Quarter: 2019Q1

REPORT INFORMATION
  Report Type: Spontaneous
  Country: US (occurrence: US)
  Receive Date: 20181023
  Receipt Date: 20190103
  Transmission Date: 20190417
  Serious: Yes (Other)
  Sender: FDA-Public Use
  Company Number: US-BAYER-2018-195525

PATIENT
  Age: 30 Year
  Sex: Female
  Weight: 60.32 kg

DRUGS (1)
  1. KYLEENA [Suspect]
     Active Substance: LEVONORGESTREL
     Dosage: 17.5 MCG/24HR, CONT
     Route: 015
     Dates: start: 20170622

REACTIONS (5)
  - Ruptured ectopic pregnancy [None]
  - Drug ineffective [None]
  - Ectopic pregnancy with contraceptive device [None]
  - Syncope [None]
  - Abdominal pain [None]
